FAERS Safety Report 21102839 (Version 2)
Quarter: 2022Q3

REPORT INFORMATION
  Report Type: Other
  Country: US (occurrence: None)
  Receive Date: 20220720
  Receipt Date: 20220721
  Transmission Date: 20221027
  Serious: No
  Sender: FDA-Public Use
  Company Number: US-ROCHE-3142076

PATIENT
  Sex: Male

DRUGS (1)
  1. OCREVUS [Suspect]
     Active Substance: OCRELIZUMAB
     Indication: Relapsing multiple sclerosis
     Dosage: THEN 600 MG EVERY 6 MONTHS?DATE OF TREATMENT:28/APR/2022,28/OCT/2021,14/APR/2021
     Route: 042
     Dates: start: 20210421

REACTIONS (1)
  - Herpes zoster [Recovered/Resolved]
